FAERS Safety Report 13713528 (Version 7)
Quarter: 2021Q1

REPORT INFORMATION
  Report Type: Spontaneous
  Country: US (occurrence: US)
  Receive Date: 20170704
  Receipt Date: 20210330
  Transmission Date: 20210419
  Serious: Yes (Other)
  Sender: FDA-Public Use
  Company Number: PHEH2017US020421

PATIENT
  Sex: Female
  Weight: 72.56 kg

DRUGS (4)
  1. ZOFRAN [Suspect]
     Active Substance: ONDANSETRON HYDROCHLORIDE
     Indication: MORNING SICKNESS
     Dosage: 4 MG, Q6H
     Route: 065
     Dates: start: 20120712, end: 20120712
  2. ZOFRAN ODT [Suspect]
     Active Substance: ONDANSETRON HYDROCHLORIDE
     Indication: MORNING SICKNESS
     Dosage: 1 DF, Q6H
     Route: 048
     Dates: start: 20120109, end: 20120208
  3. ONDANSETRON [Suspect]
     Active Substance: ONDANSETRON
     Indication: MORNING SICKNESS
     Dosage: 04 MG, PRN
     Route: 048
     Dates: start: 20120119, end: 20120712
  4. ZOFRAN [Suspect]
     Active Substance: ONDANSETRON HYDROCHLORIDE
     Indication: PRODUCT USED FOR UNKNOWN INDICATION
     Route: 048

REACTIONS (19)
  - Anxiety disorder [Unknown]
  - Product use issue [Unknown]
  - Haemorrhage [Unknown]
  - Urinary retention [Unknown]
  - High risk pregnancy [Unknown]
  - Pelvic pain [Unknown]
  - Ischaemia [Unknown]
  - Cough [Unknown]
  - Complication of pregnancy [Unknown]
  - Anaemia of pregnancy [Unknown]
  - Sepsis [Unknown]
  - Product use in unapproved indication [Unknown]
  - Embolism [Unknown]
  - Thyroid dysfunction in pregnancy [Unknown]
  - Hypoxia [Unknown]
  - Maternal exposure during pregnancy [Unknown]
  - Injury [Unknown]
  - Emotional distress [Unknown]
  - Constipation [Unknown]
